FAERS Safety Report 9699760 (Version 1)
Quarter: 2013Q4

REPORT INFORMATION
  Report Type: Spontaneous
  Country: US (occurrence: US)
  Receive Date: 20131120
  Receipt Date: 20131120
  Transmission Date: 20140711
  Serious: No
  Sender: FDA-Public Use
  Company Number: US-TEVA-373349USA

PATIENT
  Age: 23 Year
  Sex: Female
  Weight: 74.46 kg

DRUGS (10)
  1. PARAGARD 380A [Suspect]
     Indication: CONTRACEPTION
     Route: 015
     Dates: start: 20121128, end: 20121128
  2. AMBIEN [Concomitant]
     Indication: ANXIETY
  3. AMBIEN [Concomitant]
     Indication: BIPOLAR DISORDER
  4. AMBIEN [Concomitant]
     Indication: DEPRESSION
  5. TOPAMAX [Concomitant]
     Indication: ANXIETY
  6. TOPAMAX [Concomitant]
     Indication: BIPOLAR DISORDER
  7. TOPAMAX [Concomitant]
     Indication: DEPRESSION
  8. VALIUM [Concomitant]
     Indication: ANXIETY
  9. VALIUM [Concomitant]
     Indication: BIPOLAR DISORDER
  10. VALIUM [Concomitant]
     Indication: DEPRESSION

REACTIONS (1)
  - Uterine spasm [Recovered/Resolved]
